FAERS Safety Report 24563681 (Version 1)
Quarter: 2024Q4

REPORT INFORMATION
  Report Type: Spontaneous
  Country: SE (occurrence: SE)
  Receive Date: 20241030
  Receipt Date: 20241030
  Transmission Date: 20250114
  Serious: Yes (Death, Other)
  Sender: MERCK
  Company Number: None

PATIENT
  Age: 73 Year
  Sex: Female
  Weight: 75 kg

DRUGS (12)
  1. KEYTRUDA [Suspect]
     Active Substance: PEMBROLIZUMAB
     Indication: Lung adenocarcinoma
     Dosage: 400MG EVERY 6 WEEKS
     Route: 042
     Dates: start: 20230309, end: 20230607
  2. FOLSYRA EQL PHARMA [Concomitant]
     Dosage: 1X1
     Route: 048
     Dates: start: 20230224
  3. METOPROLOL SUCCINATE [Concomitant]
     Active Substance: METOPROLOL SUCCINATE
     Dosage: 1X1
     Route: 048
     Dates: start: 20170830
  4. BEVIPLEX COMP [Concomitant]
     Dosage: 1X1
     Route: 048
     Dates: start: 20160414
  5. CLOPIDOGREL ACTAVIS [CLOPIDOGREL BESYLATE] [Concomitant]
     Dosage: 1X1
     Route: 048
     Dates: start: 20141121
  6. ERGOCALCIFEROL [Concomitant]
     Active Substance: ERGOCALCIFEROL
     Dosage: 1X1
     Route: 048
     Dates: start: 20180430, end: 20230607
  7. ROSUVASTATIN [Concomitant]
     Active Substance: ROSUVASTATIN
     Dosage: 1X1
     Dates: start: 20190821
  8. KEPPRA [Concomitant]
     Active Substance: LEVETIRACETAM
     Dosage: 1X2
     Route: 048
     Dates: start: 20151026
  9. ALENDRONATE [Concomitant]
     Active Substance: ALENDRONATE SODIUM
     Dosage: 1/WEEK
     Route: 048
     Dates: start: 20121029
  10. AMLODIPINE [Concomitant]
     Active Substance: AMLODIPINE BESYLATE
     Dosage: 1X1
     Route: 048
     Dates: start: 20201006
  11. IMOVANE [Concomitant]
     Active Substance: ZOPICLONE
     Dosage: ETC
     Route: 048
     Dates: start: 20230301
  12. PRIMPERAN [Concomitant]
     Active Substance: METOCLOPRAMIDE HYDROCHLORIDE
     Dosage: ETC
     Route: 048
     Dates: start: 20230301

REACTIONS (1)
  - Myocarditis [Fatal]

NARRATIVE: CASE EVENT DATE: 20230611
